FAERS Safety Report 20663491 (Version 1)
Quarter: 2022Q2

REPORT INFORMATION
  Report Type: Report from Study
  Country: US (occurrence: US)
  Receive Date: 20220401
  Receipt Date: 20220401
  Transmission Date: 20220720
  Serious: Yes (Death, Other)
  Sender: FDA-Public Use
  Company Number: US-MMM-H1INQG97

PATIENT
  Sex: Female

DRUGS (1)
  1. BELANTAMAB MAFODOTIN [Suspect]
     Active Substance: BELANTAMAB MAFODOTIN
     Indication: Plasma cell myeloma
     Dosage: 2.5 MG/KG, RECEIVED AT LEAST ONE INFUSION
     Route: 042
     Dates: start: 20211215, end: 20211215

REACTIONS (2)
  - Death [Fatal]
  - Eye pain [Unknown]
